FAERS Safety Report 16737502 (Version 1)
Quarter: 2019Q3

REPORT INFORMATION
  Report Type: Spontaneous
  Country: CN (occurrence: CN)
  Receive Date: 20190823
  Receipt Date: 20190823
  Transmission Date: 20191005
  Serious: Yes (Life-Threatening, Hospitalization, Other)
  Sender: FDA-Public Use
  Company Number: CN-BRISTOL-MYERS SQUIBB COMPANY-BMS-2019-081872

PATIENT
  Age: 74 Year
  Sex: Male

DRUGS (1)
  1. OPDIVO [Suspect]
     Active Substance: NIVOLUMAB
     Indication: THYMOMA
     Dosage: N/A
     Route: 042
     Dates: start: 20190808

REACTIONS (6)
  - Cardiac arrest [Unknown]
  - Intentional product use issue [Unknown]
  - Myocarditis [Unknown]
  - Pneumonitis [Unknown]
  - Muscular weakness [Unknown]
  - Vision blurred [Unknown]
